FAERS Safety Report 9559303 (Version 1)
Quarter: 2013Q3

REPORT INFORMATION
  Report Type: Spontaneous
  Country: FR (occurrence: FR)
  Receive Date: 20130927
  Receipt Date: 20130927
  Transmission Date: 20140515
  Serious: Yes (Other)
  Sender: FDA-Public Use
  Company Number: PHHY2013FR107355

PATIENT
  Age: 67 Year
  Sex: Female

DRUGS (3)
  1. ACLASTA [Suspect]
     Indication: OSTEOPOROSIS
     Dosage: UNK, ONCE YEARLY
     Route: 042
     Dates: start: 200812
  2. ACLASTA [Suspect]
     Dosage: UNK, ONCE YEARLY
     Route: 042
     Dates: start: 201212
  3. PARACETAMOL [Concomitant]
     Indication: ANTIVIRAL PROPHYLAXIS
     Dosage: UNK
     Dates: start: 201212

REACTIONS (1)
  - Asthmatic crisis [Recovered/Resolved]
